FAERS Safety Report 6237967-5 (Version None)
Quarter: 2009Q2

REPORT INFORMATION
  Report Type: 
  Country: None (occurrence: None)
  Receive Date: 20090617
  Receipt Date: 20090617
  Transmission Date: 20091009
  Serious: Yes (Other)
  Sender: FDA-Public Use
  Company Number: None

PATIENT
  Age: 26 Year
  Sex: Male
  Weight: 61.2356 kg

DRUGS (3)
  1. TRIMETHOPRIM-SULFAMETHOXAZOLE DS MANUFACTURER UNKNOWN [Suspect]
     Indication: ACNE
     Dosage: ORAL 047
     Route: 048
     Dates: start: 20090330
  2. TRIMETHOPRIM-SULFAMETHOXAZOLE DS MANUFACTURER UNKNOWN [Suspect]
     Indication: ACNE
     Dosage: ORAL 047
     Route: 048
     Dates: start: 20090421
  3. DOXYCYCLINE [Concomitant]

REACTIONS (5)
  - ALANINE AMINOTRANSFERASE INCREASED [None]
  - BLOOD ALKALINE PHOSPHATASE INCREASED [None]
  - GAMMA-GLUTAMYLTRANSFERASE INCREASED [None]
  - JAUNDICE [None]
  - VOMITING [None]
